FAERS Safety Report 5087491-0 (Version None)
Quarter: 2006Q3

REPORT INFORMATION
  Report Type: 
  Country: None (occurrence: None)
  Receive Date: 20060727
  Receipt Date: 20060501
  Transmission Date: 20061208
  Serious: Yes (Other)
  Sender: FDA-Public Use
  Company Number: 2006058860

PATIENT
  Age: 41 Year
  Sex: Female

DRUGS (2)
  1. LYRICA [Suspect]
     Indication: NEUROPATHY PERIPHERAL
     Dosage: 300 MG (150 MG, 2 IN 1 D), ORAL
     Route: 048
     Dates: start: 20060401
  2. ALL OTHER NON-THERAPEUTIC PRODUCTS (ALL OTHER NON-THERAPEUTIC PRODUCTS [Suspect]
     Indication: ILL-DEFINED DISORDER
     Dates: start: 20060401

REACTIONS (2)
  - ALOPECIA [None]
  - BURNING SENSATION [None]
